FAERS Safety Report 20954276 (Version 1)
Quarter: 2022Q2

REPORT INFORMATION
  Report Type: Spontaneous
  Country: GB (occurrence: GB)
  Receive Date: 20220614
  Receipt Date: 20220614
  Transmission Date: 20220721
  Serious: Yes (Hospitalization, Other)
  Sender: FDA-Public Use
  Company Number: GB-ENDO PHARMACEUTICALS INC-2022-003526

PATIENT
  Sex: Female

DRUGS (1)
  1. KETALAR [Suspect]
     Active Substance: KETAMINE HYDROCHLORIDE
     Indication: Product used for unknown indication
     Dosage: UNK UNKNOWN, UNKNOWN
     Route: 065

REACTIONS (9)
  - Ureterolithiasis [Recovered/Resolved]
  - Ureteric dilatation [Unknown]
  - Ureteric stenosis [Recovered/Resolved]
  - Bladder disorder [Unknown]
  - Hydronephrosis [Unknown]
  - Drug abuse [Unknown]
  - Renal atrophy [Unknown]
  - Urinary tract infection [Unknown]
  - Nephrolithiasis [Unknown]
